FAERS Safety Report 10435829 (Version 4)
Quarter: 2014Q4

REPORT INFORMATION
  Report Type: Spontaneous
  Country: IT (occurrence: IT)
  Receive Date: 20140908
  Receipt Date: 20141103
  Transmission Date: 20150528
  Serious: Yes (Hospitalization, Other)
  Sender: FDA-Public Use
  Company Number: IT-ROCHE-1456951

PATIENT
  Age: 49 Year
  Sex: Male

DRUGS (9)
  1. INCIVO [Suspect]
     Active Substance: TELAPREVIR
     Indication: HEPATIC CIRRHOSIS
     Route: 048
     Dates: start: 20131211, end: 20140304
  2. DELTACORTENE [Suspect]
     Active Substance: PREDNISONE
     Indication: DRUG ERUPTION
     Route: 048
     Dates: start: 20140423, end: 20140618
  3. COPEGUS [Suspect]
     Active Substance: RIBAVIRIN
     Indication: HEPATIC CIRRHOSIS
     Route: 048
     Dates: start: 20131211, end: 20140618
  4. COPEGUS [Suspect]
     Active Substance: RIBAVIRIN
     Route: 065
  5. COPEGUS [Suspect]
     Active Substance: RIBAVIRIN
     Route: 048
     Dates: start: 20140325
  6. PEGASYS [Suspect]
     Active Substance: PEGINTERFERON ALFA-2A
     Indication: HEPATIC CIRRHOSIS
     Route: 058
     Dates: start: 20131211, end: 20140618
  7. PEGASYS [Suspect]
     Active Substance: PEGINTERFERON ALFA-2A
     Route: 058
     Dates: start: 20140204
  8. COPEGUS [Suspect]
     Active Substance: RIBAVIRIN
     Route: 048
     Dates: start: 20140204
  9. CINNARIZINE [Concomitant]
     Active Substance: CINNARIZINE
     Route: 048

REACTIONS (6)
  - Haemorrhoidal haemorrhage [Recovering/Resolving]
  - Rash generalised [Not Recovered/Not Resolved]
  - Rash [Unknown]
  - Weight decreased [Unknown]
  - Asthenia [Unknown]
  - Diabetes mellitus [Recovered/Resolved with Sequelae]

NARRATIVE: CASE EVENT DATE: 20140325
